FAERS Safety Report 8988959 (Version 1)
Quarter: 2012Q4

REPORT INFORMATION
  Report Type: Spontaneous
  Country: US (occurrence: None)
  Receive Date: 20121224
  Receipt Date: 20121224
  Transmission Date: 20130627
  Serious: Yes (Hospitalization)
  Sender: FDA-Public Use
  Company Number: None

PATIENT
  Sex: Male
  Weight: 60 kg

DRUGS (1)
  1. CARBOPLATIN [Suspect]
     Dates: start: 20121126

REACTIONS (4)
  - Sialoadenitis [None]
  - Pyrexia [None]
  - Pain in jaw [None]
  - Swelling [None]
